FAERS Safety Report 9525442 (Version 1)
Quarter: 2013Q3

REPORT INFORMATION
  Report Type: Spontaneous
  Country: US (occurrence: None)
  Receive Date: 20130912
  Receipt Date: 20130912
  Transmission Date: 20140515
  Serious: Yes (Other)
  Sender: FDA-Public Use
  Company Number: 2013P1018992

PATIENT
  Age: 6 Week
  Sex: Female

DRUGS (1)
  1. DOXYCYCLINE [Suspect]
     Indication: SCLEROTHERAPY
     Dosage: 80 MG;X3;IL
     Route: 027

REACTIONS (4)
  - Horner^s syndrome [None]
  - Aspiration [None]
  - Dysphagia [None]
  - Nerve injury [None]
